FAERS Safety Report 9984997 (Version 1)
Quarter: 2014Q1

REPORT INFORMATION
  Report Type: Report from Study
  Country: US (occurrence: US)
  Receive Date: 20140307
  Receipt Date: 20140307
  Transmission Date: 20141002
  Serious: No
  Sender: FDA-Public Use
  Company Number: US-ABBVIE-13P-163-1185163-00

PATIENT
  Age: 50 Year
  Sex: Female

DRUGS (10)
  1. HUMIRA [Suspect]
     Indication: COLITIS ULCERATIVE
     Dates: start: 20131209, end: 20131209
  2. HUMIRA [Suspect]
     Dates: start: 20131223, end: 20131223
  3. HUMIRA [Suspect]
  4. APRISO [Concomitant]
     Indication: COLITIS ULCERATIVE
     Dosage: BY MOUTH
     Route: 048
  5. METFORMIN [Concomitant]
     Indication: DIABETES MELLITUS
     Route: 048
  6. LISINOPRIL [Concomitant]
     Indication: HYPERTENSION
     Route: 048
  7. BUSPIRONE [Concomitant]
     Indication: ANXIETY
     Route: 048
  8. VITAMIN B12 [Concomitant]
     Indication: PARAESTHESIA
     Route: 048
  9. FERROUS SULFATE [Concomitant]
     Indication: BLOOD TRIGLYCERIDES INCREASED
     Route: 048
  10. FISH OIL [Concomitant]
     Indication: BLOOD TRIGLYCERIDES INCREASED
     Route: 048

REACTIONS (1)
  - Injection site pain [Recovered/Resolved]
